FAERS Safety Report 5027692-0 (Version None)
Quarter: 2006Q2

REPORT INFORMATION
  Report Type: 
  Country: None (occurrence: None)
  Receive Date: 20060616
  Receipt Date: 20060606
  Transmission Date: 20061013
  Serious: Yes (Hospitalization)
  Sender: FDA-Public Use
  Company Number: US-AVENTIS-200615130US

PATIENT
  Age: 27 Year
  Sex: Male

DRUGS (8)
  1. KETEK [Suspect]
     Indication: COUGH
     Dosage: DOSE: UNK
     Dates: start: 20050411, end: 20050415
  2. KETEK [Suspect]
     Indication: HEADACHE
     Dosage: DOSE: UNK
     Dates: start: 20050411, end: 20050415
  3. KETEK [Suspect]
     Indication: PHARYNGOLARYNGEAL PAIN
     Dosage: DOSE: UNK
     Dates: start: 20050411, end: 20050415
  4. KETEK [Suspect]
     Indication: RHINORRHOEA
     Dosage: DOSE: UNK
     Dates: start: 20050411, end: 20050415
  5. DOXYCYCLINE [Suspect]
     Indication: HEADACHE
     Dosage: DOSE: UNK
     Dates: start: 20050428, end: 20050501
  6. DOXYCYCLINE [Suspect]
     Indication: MALAISE
     Dosage: DOSE: UNK
     Dates: start: 20050428, end: 20050501
  7. DOXYCYCLINE [Suspect]
     Indication: PAIN
     Dosage: DOSE: UNK
     Dates: start: 20050428, end: 20050501
  8. CONCERTA [Concomitant]
     Indication: ATTENTION DEFICIT/HYPERACTIVITY DISORDER
     Dosage: DOSE: UNK

REACTIONS (15)
  - ASCITES [None]
  - COAGULOPATHY [None]
  - EOSINOPHILIA [None]
  - HEADACHE [None]
  - HYPERSENSITIVITY [None]
  - JAUNDICE [None]
  - LIVER DISORDER [None]
  - MALAISE [None]
  - OEDEMA [None]
  - PAIN [None]
  - PNEUMONIA [None]
  - PYREXIA [None]
  - SPLENOMEGALY [None]
  - TRANSAMINASES INCREASED [None]
  - WEIGHT INCREASED [None]
